FAERS Safety Report 17819986 (Version 1)
Quarter: 2020Q2

REPORT INFORMATION
  Report Type: Spontaneous
  Country: US (occurrence: US)
  Receive Date: 20200525
  Receipt Date: 20200525
  Transmission Date: 20200714
  Serious: No
  Sender: FDA-Public Use
  Company Number: US-INCYTE CORPORATION-2020IN004268

PATIENT

DRUGS (1)
  1. JAKAFI [Suspect]
     Active Substance: RUXOLITINIB
     Indication: POLYCYTHAEMIA VERA
     Dosage: 5 MILLIGRAM, BID
     Route: 048
     Dates: start: 20200414

REACTIONS (8)
  - Pain threshold decreased [Unknown]
  - Injury [Unknown]
  - Pain in extremity [Unknown]
  - Lethargy [Unknown]
  - Limb injury [Unknown]
  - Fatigue [Unknown]
  - Decreased activity [Unknown]
  - Pain [Unknown]
